FAERS Safety Report 8503216-8 (Version None)
Quarter: 2012Q2

REPORT INFORMATION
  Report Type: 
  Country: None (occurrence: None)
  Receive Date: 20120405
  Receipt Date: 20100630
  Transmission Date: 20120825
  Serious: Yes (Hospitalization)
  Sender: FDA-Public Use
  Company Number: PHHY2010US14855

PATIENT
  Age: 61 Year
  Sex: Female

DRUGS (4)
  1. RECLAST [Suspect]
     Dosage: INFUSION
     Dates: start: 20100228
  2. CORTISONE ACETATE [Concomitant]
  3. CALCIUM WITH VITAMIN D (CALCIUM PHOSPHATE, CALCIUM SODIUM LACTATE, ERG [Concomitant]
  4. STEROIDS NOS (NO INGREDIENTS/SUBSTANCES) [Concomitant]

REACTIONS (6)
  - ABASIA [None]
  - WALKING AID USER [None]
  - ARTHRALGIA [None]
  - DYSSTASIA [None]
  - PAIN [None]
  - ACTIVITIES OF DAILY LIVING IMPAIRED [None]
